FAERS Safety Report 18147053 (Version 3)
Quarter: 2020Q4

REPORT INFORMATION
  Report Type: Report from Study
  Country: None (occurrence: US)
  Receive Date: 20200814
  Receipt Date: 20201029
  Transmission Date: 20210113
  Serious: Yes (Other)
  Sender: FDA-Public Use
  Company Number: US-ABBVIE-20K-163-3513799-00

PATIENT
  Age: 71 Year
  Sex: Male

DRUGS (3)
  1. VENCLEXTA [Suspect]
     Active Substance: VENETOCLAX
     Route: 048
     Dates: start: 2020, end: 2020
  2. EPCLUSA [Concomitant]
     Active Substance: SOFOSBUVIR\VELPATASVIR
     Indication: PRODUCT USED FOR UNKNOWN INDICATION
     Dates: start: 202009
  3. VENCLEXTA [Suspect]
     Active Substance: VENETOCLAX
     Indication: CHRONIC LYMPHOCYTIC LEUKAEMIA
     Route: 048
     Dates: start: 20191015, end: 20200803

REACTIONS (13)
  - Hypoaesthesia [Not Recovered/Not Resolved]
  - Fibrosis [Unknown]
  - Blood pressure abnormal [Unknown]
  - Macule [Unknown]
  - Spider vein [Recovered/Resolved]
  - Headache [Not Recovered/Not Resolved]
  - Chronic hepatitis C [Recovered/Resolved]
  - Tinnitus [Not Recovered/Not Resolved]
  - Discomfort [Unknown]
  - Bone cancer [Unknown]
  - Eructation [Unknown]
  - Hepatic enzyme increased [Unknown]
  - Arthralgia [Not Recovered/Not Resolved]

NARRATIVE: CASE EVENT DATE: 202005
